FAERS Safety Report 4603193-6 (Version None)
Quarter: 2005Q1

REPORT INFORMATION
  Report Type: 
  Country: None (occurrence: None)
  Receive Date: 20050307
  Receipt Date: 20050217
  Transmission Date: 20050727
  Serious: Yes (Other)
  Sender: FDA-Public Use
  Company Number: DSA_60470_2005

PATIENT
  Age: 45 Year
  Sex: Female

DRUGS (2)
  1. MYSOLINE [Suspect]
     Dosage: DF
  2. CARBAMAZEPINE [Suspect]
     Indication: TEMPORAL LOBE EPILEPSY
     Dosage: DF

REACTIONS (3)
  - BRADYCARDIA [None]
  - CONVULSION [None]
  - SINUS TACHYCARDIA [None]
